FAERS Safety Report 10070874 (Version 2)
Quarter: 2014Q2

REPORT INFORMATION
  Report Type: Spontaneous
  Country: US (occurrence: US)
  Receive Date: 20140410
  Receipt Date: 20140528
  Transmission Date: 20141212
  Serious: Yes (Death, Life-Threatening, Hospitalization, Other)
  Sender: FDA-Public Use
  Company Number: US-009507513-1404USA005923

PATIENT
  Sex: Female
  Weight: 83.9 kg

DRUGS (1)
  1. JANUVIA [Suspect]
     Indication: TYPE 2 DIABETES MELLITUS
     Dosage: 100 MG, QD
     Route: 048
     Dates: start: 20110531, end: 20120104

REACTIONS (20)
  - Metastases to lymph nodes [Unknown]
  - Hysterectomy [Unknown]
  - Cataract operation [Unknown]
  - Hyperlipidaemia [Unknown]
  - Hyperhidrosis [Unknown]
  - Drug intolerance [Unknown]
  - Malaise [Unknown]
  - Asthenia [Unknown]
  - Malaise [Unknown]
  - Hyperhidrosis [Unknown]
  - Asthenia [Unknown]
  - Renal cyst [Unknown]
  - Hyponatraemia [Recovering/Resolving]
  - Hypovolaemia [Unknown]
  - Biliary dilatation [Unknown]
  - Arterial disorder [Unknown]
  - Nausea [Unknown]
  - Nausea [Unknown]
  - Pancreatic carcinoma [Fatal]
  - Stent placement [Unknown]
